FAERS Safety Report 4273826-5 (Version None)
Quarter: 2004Q1

REPORT INFORMATION
  Report Type: 
  Country: None (occurrence: None)
  Receive Date: 20040120
  Receipt Date: 20040114
  Transmission Date: 20041129
  Serious: Yes (Other)
  Sender: FDA-Public Use
  Company Number: PHRM2004FR00536

PATIENT
  Age: 91 Year
  Sex: Female

DRUGS (4)
  1. NISIS [Suspect]
     Indication: HYPERTENSION
     Dosage: 80 MG, QD
     Route: 048
  2. MOTILIUM [Concomitant]
  3. ACETAMINOPHEN [Concomitant]
  4. NAFTIDROFURYL [Concomitant]

REACTIONS (4)
  - BLISTER [None]
  - DERMATITIS BULLOUS [None]
  - DRUG ERUPTION [None]
  - RASH ERYTHEMATOUS [None]
